APPROVED DRUG PRODUCT: PENTOLAIR
Active Ingredient: CYCLOPENTOLATE HYDROCHLORIDE
Strength: 1%
Dosage Form/Route: SOLUTION/DROPS;OPHTHALMIC
Application: A040075 | Product #001 | TE Code: AT
Applicant: BAUSCH AND LOMB PHARMACEUTICALS INC
Approved: Apr 29, 1994 | RLD: No | RS: No | Type: RX